FAERS Safety Report 9245884 (Version 1)
Quarter: 2013Q2

REPORT INFORMATION
  Report Type: Spontaneous
  Country: US (occurrence: US)
  Receive Date: 20130422
  Receipt Date: 20130422
  Transmission Date: 20140414
  Serious: No
  Sender: FDA-Public Use
  Company Number: US-BRISTOL-MYERS SQUIBB COMPANY-18700336

PATIENT
  Sex: 0

DRUGS (1)
  1. ELIQUIS [Suspect]
     Dosage: FLIM COATED TABS

REACTIONS (2)
  - Pruritus [Unknown]
  - Limb discomfort [Unknown]
